FAERS Safety Report 15808941 (Version 6)
Quarter: 2019Q1

REPORT INFORMATION
  Report Type: Report from Study
  Country: KR (occurrence: KR)
  Receive Date: 20190110
  Receipt Date: 20190308
  Transmission Date: 20190417
  Serious: Yes (Hospitalization)
  Sender: FDA-Public Use
  Company Number: KR-BAUSCH-BL-2019-000845

PATIENT
  Age: 35 Year
  Sex: Female
  Weight: 70 kg

DRUGS (5)
  1. TACENOL ER [Concomitant]
     Indication: AXIAL SPONDYLOARTHRITIS
     Dosage: EXTENDED RELEASE
     Route: 048
     Dates: start: 20180731
  2. KHK4827 (BRODALUMAB) [Suspect]
     Active Substance: BRODALUMAB
     Route: 058
     Dates: end: 20190225
  3. KHK4827 (BRODALUMAB) [Suspect]
     Active Substance: BRODALUMAB
     Indication: AXIAL SPONDYLOARTHRITIS
     Route: 058
     Dates: start: 20180212
  4. STILLEN [Concomitant]
     Indication: GASTROINTESTINAL DISORDER PROPHYLAXIS
     Dosage: 2X TAB
     Route: 048
     Dates: start: 20180731
  5. PRODAG [Concomitant]
     Indication: AXIAL SPONDYLOARTHRITIS
     Route: 048
     Dates: start: 20180731

REACTIONS (1)
  - Diverticulitis [Recovered/Resolved]

NARRATIVE: CASE EVENT DATE: 20190103
